FAERS Safety Report 9391018 (Version 1)
Quarter: 2013Q3

REPORT INFORMATION
  Report Type: Spontaneous
  Country: CN (occurrence: CN)
  Receive Date: 20130709
  Receipt Date: 20130709
  Transmission Date: 20140515
  Serious: Yes (Hospitalization)
  Sender: FDA-Public Use
  Company Number: CN-BAYER-2013-082389

PATIENT
  Sex: Female

DRUGS (1)
  1. ULTRAVIST 370 [Suspect]
     Indication: COMPUTERISED TOMOGRAM ABDOMEN
     Dosage: 80ML WITH FLOW SPEED 2.5ML/SEC IN 10MIN, ONCE
     Dates: start: 20130702, end: 20130702

REACTIONS (5)
  - Dizziness [None]
  - Dyspnoea [None]
  - Cyanosis [None]
  - Flushing [None]
  - Pruritus [None]
